FAERS Safety Report 7298785-2 (Version None)
Quarter: 2011Q1

REPORT INFORMATION
  Report Type: 
  Country: None (occurrence: None)
  Receive Date: 20110217
  Receipt Date: 20110211
  Transmission Date: 20110831
  Serious: Yes (Hospitalization, Other)
  Sender: FDA-Public Use
  Company Number: US-ROCHE-749949

PATIENT
  Sex: Female

DRUGS (6)
  1. RIBASPHERE [Suspect]
     Route: 065
     Dates: start: 20101126
  2. PEGINTERFERON ALFA-2A [Suspect]
     Indication: HEPATITIS C
     Route: 065
     Dates: start: 20100830
  3. PEGINTERFERON ALFA-2A [Suspect]
     Route: 065
     Dates: start: 20110101
  4. PROCRIT [Suspect]
     Route: 065
     Dates: start: 20101126, end: 20101201
  5. RIBASPHERE [Suspect]
     Indication: HEPATITIS C
     Route: 065
     Dates: start: 20100830
  6. RIBASPHERE [Suspect]
     Route: 065
     Dates: start: 20110101

REACTIONS (5)
  - HAEMOGLOBIN DECREASED [None]
  - PLATELET COUNT DECREASED [None]
  - PAIN IN EXTREMITY [None]
  - DEEP VEIN THROMBOSIS [None]
  - ANAEMIA [None]
